FAERS Safety Report 19393197 (Version 1)
Quarter: 2021Q2

REPORT INFORMATION
  Report Type: Spontaneous
  Country: US (occurrence: US)
  Receive Date: 20210608
  Receipt Date: 20210608
  Transmission Date: 20210717
  Serious: Yes (Hospitalization)
  Sender: FDA-Public Use
  Company Number: None

PATIENT
  Age: 39 Year
  Sex: Male
  Weight: 99.1 kg

DRUGS (6)
  1. DILTIAZEM 24H ER 240 MG CP [Concomitant]
     Dates: start: 20201116
  2. HYDRALAZINE 50 MG TAB [Concomitant]
     Dates: start: 20201027
  3. ISOSORBIDE MONO TAB 60MG ER [Concomitant]
     Dates: start: 20201020
  4. ELIQUIS [Suspect]
     Active Substance: APIXABAN
     Indication: ATRIAL FIBRILLATION
     Route: 048
     Dates: start: 20201020
  5. DOXAZOSIN 2MG TAB [Concomitant]
     Dates: start: 20201020
  6. LABETALOL 200MG TAB [Concomitant]
     Active Substance: LABETALOL HYDROCHLORIDE
     Dates: start: 20201020

REACTIONS (2)
  - Subcapsular renal haematoma [None]
  - Therapy cessation [None]

NARRATIVE: CASE EVENT DATE: 20210605
